FAERS Safety Report 13028106 (Version 2)
Quarter: 2020Q1

REPORT INFORMATION
  Report Type: Spontaneous
  Country: US (occurrence: US)
  Receive Date: 20161214
  Receipt Date: 20200106
  Transmission Date: 20200409
  Serious: Yes (Other)
  Sender: FDA-Public Use
  Company Number: US-PFIZER INC-2016579506

PATIENT
  Age: 57 Year
  Weight: 81.18 kg

DRUGS (4)
  1. LIPITOR [Suspect]
     Active Substance: ATORVASTATIN CALCIUM
     Indication: LOW DENSITY LIPOPROTEIN INCREASED
     Dosage: 20 MG, DAILY
     Route: 048
     Dates: start: 200603, end: 201207
  2. LIPITOR [Suspect]
     Active Substance: ATORVASTATIN CALCIUM
     Indication: BLOOD CHOLESTEROL INCREASED
  3. LIPITOR [Suspect]
     Active Substance: ATORVASTATIN CALCIUM
     Indication: CARDIOVASCULAR EVENT PROPHYLAXIS
  4. ATORVASTATIN CALCIUM. [Suspect]
     Active Substance: ATORVASTATIN CALCIUM
     Indication: BLOOD CHOLESTEROL INCREASED
     Dosage: 20 MG, DAILY
     Dates: start: 201207

REACTIONS (1)
  - Type 2 diabetes mellitus [Not Recovered/Not Resolved]

NARRATIVE: CASE EVENT DATE: 2007
